FAERS Safety Report 23797961 (Version 7)
Quarter: 2024Q4

REPORT INFORMATION
  Report Type: Spontaneous
  Country: BE (occurrence: BE)
  Receive Date: 20240430
  Receipt Date: 20241110
  Transmission Date: 20250114
  Serious: Yes (Death, Hospitalization)
  Sender: AUROBINDO
  Company Number: BE-GILEAD-2024-0668536

PATIENT
  Sex: Female
  Weight: 50.5 kg

DRUGS (60)
  1. PEMETREXED [Suspect]
     Active Substance: PEMETREXED
     Indication: Non-small cell lung cancer metastatic
     Dosage: 750 MILLIGRAM (750 MG)
     Route: 042
     Dates: start: 20240111, end: 20240111
  2. PEMETREXED [Suspect]
     Active Substance: PEMETREXED
     Dosage: 750 MILLIGRAM (750 MG)
     Route: 042
     Dates: start: 20240111, end: 20240221
  3. PEMETREXED [Suspect]
     Active Substance: PEMETREXED
     Dosage: 750 MILLIGRAM (750 MG)
     Route: 042
     Dates: start: 20240131, end: 20240131
  4. PEMETREXED [Suspect]
     Active Substance: PEMETREXED
     Dosage: 750 MILLIGRAM (750 MG)
     Route: 042
     Dates: start: 20240221, end: 20240221
  5. PEMETREXED [Suspect]
     Active Substance: PEMETREXED
     Dosage: 750 MILLIGRAM (750 MG)
     Route: 042
     Dates: start: 20240320
  6. CISPLATIN [Suspect]
     Active Substance: CISPLATIN
     Indication: Non-small cell lung cancer metastatic
     Dosage: 110 MILLIGRAM (110 MG)
     Route: 042
     Dates: start: 20240111, end: 20240111
  7. CISPLATIN [Suspect]
     Active Substance: CISPLATIN
     Dosage: 110 MILLIGRAM (110 MG)
     Route: 042
     Dates: start: 20240111, end: 20240221
  8. CISPLATIN [Suspect]
     Active Substance: CISPLATIN
     Dosage: 110 MILLIGRAM (110 MG)
     Route: 042
     Dates: start: 20240131, end: 20240131
  9. CISPLATIN [Suspect]
     Active Substance: CISPLATIN
     Dosage: 110 MILLIGRAM (110 MG)
     Route: 042
     Dates: start: 20240221, end: 20240221
  10. CISPLATIN [Suspect]
     Active Substance: CISPLATIN
     Dosage: 83 MILLIGRAM
     Route: 042
     Dates: start: 20240320, end: 20240320
  11. ZIMBERELIMAB [Suspect]
     Active Substance: ZIMBERELIMAB
     Indication: Non-small cell lung cancer metastatic
     Dosage: 360 MILLIGRAM (360 MG)
     Route: 042
     Dates: start: 20240111, end: 20240111
  12. ZIMBERELIMAB [Suspect]
     Active Substance: ZIMBERELIMAB
     Dosage: 360 MILLIGRAM (360 MG)
     Route: 042
     Dates: start: 20240131, end: 20240131
  13. ZIMBERELIMAB [Suspect]
     Active Substance: ZIMBERELIMAB
     Dosage: 360 MILLIGRAM (360 MG)
     Route: 042
     Dates: start: 20240221, end: 20240221
  14. ZIMBERELIMAB [Suspect]
     Active Substance: ZIMBERELIMAB
     Dosage: 360 MILLIGRAM (360 MG)
     Route: 042
     Dates: start: 20240320, end: 20240320
  15. ZIMBERELIMAB [Suspect]
     Active Substance: ZIMBERELIMAB
     Dosage: 360 MILLIGRAM (360 MG)
     Route: 042
     Dates: start: 20240111, end: 20240221
  16. ARANESP [Concomitant]
     Active Substance: DARBEPOETIN ALFA
     Indication: Anaemia
     Dosage: UNK
     Route: 058
     Dates: start: 20240313
  17. AKYNZEO [Concomitant]
     Indication: Prophylaxis
     Dosage: UNK
     Route: 048
     Dates: start: 20240111
  18. ACETAMINOPHEN [Concomitant]
     Active Substance: ACETAMINOPHEN
     Indication: Chest pain
     Dosage: UNK
     Route: 048
     Dates: start: 20231221, end: 20240428
  19. ACETAMINOPHEN [Concomitant]
     Active Substance: ACETAMINOPHEN
     Dosage: UNK
     Route: 048
     Dates: start: 20231221
  20. DEXAMETHASONE [Concomitant]
     Active Substance: DEXAMETHASONE
     Indication: Prophylaxis
     Dosage: UNK
     Route: 048
     Dates: start: 20240109
  21. ESCITALOPRAM [Concomitant]
     Active Substance: ESCITALOPRAM OXALATE
     Indication: Depression
     Dosage: UNK
     Route: 048
     Dates: start: 20231111
  22. ESCITALOPRAM [Concomitant]
     Active Substance: ESCITALOPRAM OXALATE
     Dosage: UNK
     Route: 048
     Dates: start: 20231111
  23. FELDENE [Concomitant]
     Active Substance: PIROXICAM
     Indication: Chest pain
     Dosage: UNK
     Route: 048
     Dates: start: 20240313
  24. FOLIC ACID [Concomitant]
     Active Substance: FOLIC ACID
     Indication: Prophylaxis
     Dosage: UNK
     Route: 048
     Dates: start: 20231220
  25. IBUPROFEN [Concomitant]
     Active Substance: IBUPROFEN
     Indication: Chest pain
     Dosage: UNK
     Route: 048
     Dates: start: 20231215
  26. IBUPROFEN [Concomitant]
     Active Substance: IBUPROFEN
     Dosage: UNK
     Route: 048
     Dates: start: 20240312
  27. INNOHEP [Concomitant]
     Active Substance: TINZAPARIN SODIUM
     Indication: Pulmonary embolism
     Dosage: UNK
     Route: 058
     Dates: start: 20240219
  28. INNOHEP [Concomitant]
     Active Substance: TINZAPARIN SODIUM
     Dosage: UNK
     Route: 058
     Dates: start: 20240313
  29. BECLOMETHASONE DIPROPIONATE\FORMOTEROL FUMARATE [Concomitant]
     Active Substance: BECLOMETHASONE DIPROPIONATE\FORMOTEROL FUMARATE
     Indication: Dyspnoea
     Dosage: UNK
     Dates: start: 20231101
  30. KALIUM-R [Concomitant]
     Indication: Hypokalaemia
     Dosage: UNK
     Route: 048
     Dates: start: 20240413
  31. ALIZAPRIDE HYDROCHLORIDE [Concomitant]
     Active Substance: ALIZAPRIDE HYDROCHLORIDE
     Indication: Prophylaxis
     Dosage: UNK
     Route: 048
     Dates: start: 20240111
  32. LEVOTHYROXINE [Concomitant]
     Active Substance: LEVOTHYROXINE
     Indication: Hypothyroidism
     Dosage: UNK
     Route: 048
     Dates: start: 20240313
  33. LEVOTHYROXINE [Concomitant]
     Active Substance: LEVOTHYROXINE
     Dosage: UNK
     Route: 048
     Dates: start: 20240313
  34. POLYETHYLENE GLYCOLS [Concomitant]
     Active Substance: POLYETHYLENE GLYCOLS
     Indication: Prophylaxis
     Dosage: UNK
     Route: 048
     Dates: start: 20231214
  35. OMEPRAZOLE [Concomitant]
     Active Substance: OMEPRAZOLE
     Indication: Prophylaxis
     Dosage: UNK
     Route: 048
     Dates: start: 20240313
  36. OPTICROM [Concomitant]
     Active Substance: CROMOLYN SODIUM
     Indication: Conjunctivitis
     Dosage: UNK
     Route: 047
     Dates: start: 20240313
  37. OXYCODONE HYDROCHLORIDE [Concomitant]
     Active Substance: OXYCODONE HYDROCHLORIDE
     Indication: Chest pain
     Dosage: UNK
     Route: 048
     Dates: start: 20240121
  38. PANTOPRAZOLE [Concomitant]
     Active Substance: PANTOPRAZOLE
     Indication: Prophylaxis
     Dosage: UNK
     Route: 048
     Dates: start: 20231128
  39. PLATELETS [Concomitant]
     Active Substance: HUMAN PLATELET, ALLOGENIC
     Indication: Platelet count decreased
     Dosage: UNK
     Route: 042
  40. PRIMPERAN [Concomitant]
     Active Substance: METOCLOPRAMIDE HYDROCHLORIDE
     Indication: Prophylaxis
     Dosage: UNK
     Route: 048
     Dates: start: 20231226
  41. OLODATEROL HYDROCHLORIDE\TIOTROPIUM BROMIDE MONOHYDRATE [Concomitant]
     Active Substance: OLODATEROL HYDROCHLORIDE\TIOTROPIUM BROMIDE MONOHYDRATE
     Indication: Dyspnoea
     Dosage: UNK
     Route: 048
     Dates: start: 20240117
  42. SOLU-MEDROL [Concomitant]
     Active Substance: METHYLPREDNISOLONE SODIUM SUCCINATE
     Indication: Prophylaxis
     Dosage: UNK
     Route: 042
     Dates: start: 20240111
  43. TERRA-CORTRIL [Concomitant]
     Active Substance: HYDROCORTISONE ACETATE\OXYTETRACYCLINE HYDROCHLORIDE
     Indication: Conjunctivitis
     Dosage: UNK
     Route: 047
     Dates: start: 20240313
  44. TRAMADOL HYDROCHLORIDE [Concomitant]
     Active Substance: TRAMADOL HYDROCHLORIDE
     Indication: Chest pain
     Dosage: UNK
     Route: 048
     Dates: start: 20240117
  45. TRAMADOL HYDROCHLORIDE [Concomitant]
     Active Substance: TRAMADOL HYDROCHLORIDE
     Indication: Chest pain
     Dosage: UNK
     Route: 048
     Dates: start: 20231226
  46. VENTOLIN [Concomitant]
     Active Substance: ALBUTEROL SULFATE
     Indication: Dyspnoea
     Dosage: UNK
     Dates: start: 20240221
  47. VITAMIN B12 [Concomitant]
     Active Substance: CYANOCOBALAMIN
     Indication: Prophylaxis
     Dosage: UNK
     Route: 030
     Dates: start: 20231220
  48. XANAX [Concomitant]
     Active Substance: ALPRAZOLAM
     Indication: Depression
     Dosage: UNK
     Route: 048
     Dates: start: 20240117
  49. XANAX [Concomitant]
     Active Substance: ALPRAZOLAM
     Dosage: UNK
     Route: 048
     Dates: start: 20240117
  50. ZOLPIDEM [Concomitant]
     Active Substance: ZOLPIDEM TARTRATE
     Indication: Prophylaxis
     Dosage: UNK
     Route: 048
     Dates: start: 20231226
  51. NADROPARIN CALCIUM [Concomitant]
     Active Substance: NADROPARIN CALCIUM
     Indication: Prophylaxis
     Dosage: UNK
     Route: 058
     Dates: start: 20240408, end: 20240410
  52. ONDANSETRON [Concomitant]
     Active Substance: ONDANSETRON
     Indication: Nausea
     Dosage: UNK
     Route: 042
     Dates: start: 20240403
  53. ACETAMINOPHEN [Concomitant]
     Active Substance: ACETAMINOPHEN
     Indication: Atelectasis
     Dosage: UNK
     Route: 042
     Dates: start: 20240422
  54. KCL [Concomitant]
     Active Substance: POTASSIUM CHLORIDE
     Indication: Hypokalaemia
     Dosage: UNK
     Route: 042
     Dates: start: 20240313, end: 20240313
  55. KCL [Concomitant]
     Active Substance: POTASSIUM CHLORIDE
     Dosage: UNK
     Route: 042
     Dates: start: 20240331
  56. TRAZODONE [Concomitant]
     Active Substance: TRAZODONE HYDROCHLORIDE
     Indication: Depression
     Dosage: UNK
     Route: 048
     Dates: start: 20240406, end: 20240410
  57. SODIUM PICOSULFATE [Concomitant]
     Active Substance: SODIUM PICOSULFATE
     Indication: Constipation
     Dosage: UNK
     Route: 048
     Dates: start: 20240408
  58. MINERAL OIL [Concomitant]
     Active Substance: MINERAL OIL
     Indication: Constipation
     Dosage: UNK
     Route: 048
     Dates: start: 20240408
  59. EBASTINE [Concomitant]
     Active Substance: EBASTINE
     Indication: Prophylaxis
     Dosage: UNK
     Route: 048
     Dates: start: 20240313
  60. PEGFILGRASTIM [Concomitant]
     Active Substance: PEGFILGRASTIM
     Indication: Neutrophil count decreased
     Dosage: UNK
     Route: 058
     Dates: start: 20240417, end: 20240417

REACTIONS (2)
  - Atelectasis [Fatal]
  - General physical condition abnormal [Recovered/Resolved]

NARRATIVE: CASE EVENT DATE: 20240330
